FAERS Safety Report 9959072 (Version 1)
Quarter: 2014Q1

REPORT INFORMATION
  Report Type: Spontaneous
  Country: US (occurrence: None)
  Receive Date: 20140228
  Receipt Date: 20140228
  Transmission Date: 20141002
  Serious: Yes (Other)
  Sender: FDA-Public Use
  Company Number: None

PATIENT
  Age: 78 Year
  Sex: Male

DRUGS (4)
  1. ZITHROMAX Z-PAK [Suspect]
     Indication: RESPIRATORY DISORDER
     Dosage: 250?5-DAY SYPPLY (6 PILLS)?TAKE 2 ON DAY ONE, THEN 1/DAY FOR NEXT 4 DAYS.?BY MOUTH
     Route: 048
     Dates: start: 20131104, end: 20131108
  2. PRESERVISION LUTEIN [Concomitant]
  3. VITAMIN D [Concomitant]
  4. MULTI-VI-MIN (WITHOUT COPPER AND IRON) [Concomitant]

REACTIONS (7)
  - Atrial tachycardia [None]
  - Dizziness [None]
  - Dizziness [None]
  - Balance disorder [None]
  - Palpitations [None]
  - Ataxia [None]
  - Dizziness [None]
